FAERS Safety Report 4905493-9 (Version None)
Quarter: 2006Q1

REPORT INFORMATION
  Report Type: 
  Country: None (occurrence: None)
  Receive Date: 20060208
  Receipt Date: 20060127
  Transmission Date: 20060701
  Serious: Yes (Other)
  Sender: FDA-Public Use
  Company Number: BR-BRISTOL-MYERS SQUIBB COMPANY-13263587

PATIENT
  Age: 79 Year
  Sex: Female

DRUGS (3)
  1. MAXCEF [Suspect]
     Indication: RESPIRATORY TRACT INFECTION
     Route: 042
     Dates: start: 20060122, end: 20060127
  2. SILDENAFIL [Concomitant]
     Dates: end: 20060101
  3. HYDROCORTISONE [Concomitant]
     Dates: end: 20060127

REACTIONS (7)
  - ABNORMAL BEHAVIOUR [None]
  - AGITATION [None]
  - ANAEMIA [None]
  - BLOOD CREATININE ABNORMAL [None]
  - DELUSION [None]
  - DEPRESSION [None]
  - IRRITABILITY [None]
